FAERS Safety Report 12317034 (Version 1)
Quarter: 2016Q2

REPORT INFORMATION
  Report Type: Spontaneous
  Country: None (occurrence: None)
  Receive Date: 20160428
  Receipt Date: 20160428
  Transmission Date: 20160815
  Serious: No
  Sender: FDA-Public Use
  Company Number: None

PATIENT
  Age: 60 Year
  Sex: Male

DRUGS (3)
  1. MORPHINE [Suspect]
     Active Substance: MORPHINE
  2. DIAZEPAM. [Suspect]
     Active Substance: DIAZEPAM
  3. TRULICITY [Suspect]
     Active Substance: DULAGLUTIDE

REACTIONS (9)
  - Constipation [None]
  - Suicidal ideation [None]
  - Hypersomnia [None]
  - Malaise [None]
  - Fatigue [None]
  - Asthenia [None]
  - Feeling abnormal [None]
  - Drug dose omission [None]
  - Memory impairment [None]
